FAERS Safety Report 11353779 (Version 1)
Quarter: 2015Q3

REPORT INFORMATION
  Report Type: Spontaneous
  Country: US (occurrence: US)
  Receive Date: 20150807
  Receipt Date: 20150807
  Transmission Date: 20151125
  Serious: No
  Sender: FDA-Public Use
  Company Number: US-JNJFOC-20141211478

PATIENT
  Age: 49 Year
  Sex: Male
  Weight: 121.11 kg

DRUGS (2)
  1. SUDAFED 24 HOUR [Suspect]
     Active Substance: PSEUDOEPHEDRINE HYDROCHLORIDE
     Indication: NASAL CONGESTION
     Dosage: 2 TABLETS
     Route: 048
     Dates: start: 20141212, end: 20141212
  2. SUDAFED 24 HOUR [Suspect]
     Active Substance: PSEUDOEPHEDRINE HYDROCHLORIDE
     Indication: NASOPHARYNGITIS
     Dosage: 2 TABLETS
     Route: 048
     Dates: start: 20141212, end: 20141212

REACTIONS (1)
  - Incorrect dose administered [Unknown]
